FAERS Safety Report 10299220 (Version 2)
Quarter: 2014Q4

REPORT INFORMATION
  Report Type: Report from Study
  Country: DE (occurrence: DE)
  Receive Date: 20140711
  Receipt Date: 20141024
  Transmission Date: 20150528
  Serious: Yes (Other)
  Sender: FDA-Public Use
  Company Number: DE-ABBVIE-14P-062-1256906-00

PATIENT
  Age: 29 Year
  Sex: Female
  Weight: 57 kg

DRUGS (4)
  1. HUMIRA [Suspect]
     Active Substance: ADALIMUMAB
     Indication: CROHN^S DISEASE
     Route: 058
     Dates: start: 201202
  2. HUMIRA [Suspect]
     Active Substance: ADALIMUMAB
     Route: 058
     Dates: start: 20120425
  3. AZATHIOPRIN/ 6-MP [Concomitant]
     Indication: PRODUCT USED FOR UNKNOWN INDICATION
  4. EUTHYROX [Concomitant]
     Active Substance: LEVOTHYROXINE SODIUM
     Indication: PRODUCT USED FOR UNKNOWN INDICATION

REACTIONS (7)
  - Iron deficiency [Unknown]
  - Anal fistula [Recovered/Resolved]
  - Inflammatory marker increased [Unknown]
  - Anal fistula [Unknown]
  - Enterocutaneous fistula [Unknown]
  - Anal fistula [Unknown]
  - Anal abscess [Unknown]

NARRATIVE: CASE EVENT DATE: 201211
